FAERS Safety Report 13063654 (Version 1)
Quarter: 2016Q4

REPORT INFORMATION
  Report Type: Spontaneous
  Country: US (occurrence: US)
  Receive Date: 20161227
  Receipt Date: 20161227
  Transmission Date: 20170207
  Serious: No
  Sender: FDA-Public Use
  Company Number: US-PFIZER INC-2016583544

PATIENT
  Age: 73 Year
  Sex: Female

DRUGS (3)
  1. LIDOCAINE HCL [Suspect]
     Active Substance: LIDOCAINE HYDROCHLORIDE
  2. MECLIZINE [Suspect]
     Active Substance: MECLIZINE HYDROCHLORIDE
  3. KENALOG [Suspect]
     Active Substance: TRIAMCINOLONE ACETONIDE

REACTIONS (1)
  - Pain [Recovered/Resolved]
